FAERS Safety Report 6644012-6 (Version None)
Quarter: 2010Q1

REPORT INFORMATION
  Report Type: 
  Country: None (occurrence: None)
  Receive Date: 20100322
  Receipt Date: 20100309
  Transmission Date: 20100710
  Serious: Yes (Hospitalization)
  Sender: FDA-Public Use
  Company Number: DE-ELI_LILLY_AND_COMPANY-DE201002002623

PATIENT
  Age: 26 Year
  Sex: Male

DRUGS (5)
  1. ZYPREXA [Suspect]
     Indication: SCHIZOPHRENIA
     Dosage: 10 MG, UNKNOWN
     Route: 048
     Dates: start: 20050101, end: 20100210
  2. ANTIHYPERTENSIVES [Concomitant]
     Indication: HYPERTENSION
     Dosage: UNKNOWN
  3. RAMIPRIL [Concomitant]
  4. AMLODIPIN                          /00972401/ [Concomitant]
  5. NEBIVOLOL HCL [Concomitant]

REACTIONS (3)
  - KETONURIA [None]
  - OBSESSIVE THOUGHTS [None]
  - URINARY TRACT INFECTION [None]
